FAERS Safety Report 13483572 (Version 1)
Quarter: 2017Q2

REPORT INFORMATION
  Report Type: Spontaneous
  Country: JP (occurrence: JP)
  Receive Date: 20170426
  Receipt Date: 20170426
  Transmission Date: 20170830
  Serious: Yes (Other)
  Sender: FDA-Public Use
  Company Number: JP-ACCORD-050771

PATIENT
  Age: 51 Year
  Sex: Male

DRUGS (9)
  1. OXALIPLATIN. [Suspect]
     Active Substance: OXALIPLATIN
     Indication: COLORECTAL CANCER
     Dosage: ON DAY 1
     Route: 042
  2. FLUOROURACIL. [Suspect]
     Active Substance: FLUOROURACIL
     Indication: METASTASIS
     Dosage: CONTINUOUS INFUSION; OVER 46 HOURS
  3. FOLINIC ACID [Suspect]
     Active Substance: LEUCOVORIN
     Indication: METASTASIS
     Dosage: ON DAY 1
     Route: 042
  4. FLUOROURACIL. [Suspect]
     Active Substance: FLUOROURACIL
     Indication: COLORECTAL CANCER
     Dosage: CONTINUOUS INFUSION; OVER 46 HOURS
     Route: 042
  5. FLUOROURACIL. [Suspect]
     Active Substance: FLUOROURACIL
     Indication: METASTASIS
     Dosage: OVER 46 HOURS
     Route: 040
  6. OXALIPLATIN. [Suspect]
     Active Substance: OXALIPLATIN
     Indication: COLORECTAL CANCER
     Dosage: ON DAY 1
     Route: 042
  7. PANITUMUMAB [Suspect]
     Active Substance: PANITUMUMAB
     Indication: COLORECTAL CANCER
     Dosage: REPEATED EVERY 2 WEEKS
     Route: 042
  8. PANITUMUMAB [Suspect]
     Active Substance: PANITUMUMAB
     Indication: COLORECTAL CANCER
     Dosage: REPEATED EVERY 2 WEEKS
     Route: 042
  9. FOLINIC ACID [Suspect]
     Active Substance: LEUCOVORIN
     Indication: COLORECTAL CANCER
     Dosage: ON DAY 1
     Route: 042

REACTIONS (8)
  - Neutrophil count decreased [Unknown]
  - Fatigue [Recovering/Resolving]
  - Rash [Recovering/Resolving]
  - Hypomagnesaemia [Unknown]
  - Paronychia [Unknown]
  - Neuropathy peripheral [Recovering/Resolving]
  - Anaemia [Unknown]
  - Platelet count decreased [Unknown]
